FAERS Safety Report 5848426-3 (Version None)
Quarter: 2008Q3

REPORT INFORMATION
  Report Type: 
  Country: None (occurrence: None)
  Receive Date: 20080818
  Receipt Date: 20060919
  Transmission Date: 20090109
  Serious: Yes (Life-Threatening, Hospitalization)
  Sender: FDA-Public Use
  Company Number: IT-ROCHE-573287

PATIENT
  Sex: Male

DRUGS (2)
  1. PEGASYS [Suspect]
     Route: 065
     Dates: start: 20051207, end: 20060328
  2. RIBAVIRIN [Suspect]
     Route: 065
     Dates: start: 20051207, end: 20060328

REACTIONS (1)
  - PULMONARY HYPERTENSION [None]
